FAERS Safety Report 22299600 (Version 2)
Quarter: 2023Q2

REPORT INFORMATION
  Report Type: Spontaneous
  Country: US (occurrence: US)
  Receive Date: 20230509
  Receipt Date: 20230602
  Transmission Date: 20230721
  Serious: No
  Sender: FDA-Public Use
  Company Number: US-TOLMAR, INC.-23US040492

PATIENT
  Sex: Male

DRUGS (2)
  1. FENSOLVI [Suspect]
     Active Substance: LEUPROLIDE ACETATE
     Indication: Off label use
     Dosage: UNK UNK, Q 6 MONTH
     Route: 058
     Dates: start: 202203
  2. NORDITROPIN [Concomitant]
     Active Substance: SOMATROPIN
     Indication: Blood growth hormone

REACTIONS (1)
  - Off label use [Unknown]
